FAERS Safety Report 6267740-3 (Version None)
Quarter: 2009Q3

REPORT INFORMATION
  Report Type: 
  Country: None (occurrence: None)
  Receive Date: 20090714
  Receipt Date: 20090702
  Transmission Date: 20100115
  Serious: Yes (Death, Other)
  Sender: FDA-Public Use
  Company Number: US-TYCO HEALTHCARE/MALLINCKRODT-T200901331

PATIENT
  Sex: Female

DRUGS (14)
  1. OPTIMARK [Suspect]
     Indication: NUCLEAR MAGNETIC RESONANCE IMAGING
     Dosage: UNK
     Route: 042
     Dates: start: 20060821, end: 20060821
  2. OPTIMARK [Suspect]
     Dosage: UNK
     Route: 042
     Dates: start: 20060822, end: 20060822
  3. SENSIPAR [Concomitant]
     Dosage: 30 MG, QD
     Route: 048
  4. NEPHRO-VITE                        /02375601/ [Concomitant]
     Dosage: UNK
     Route: 048
  5. AMBIEN [Concomitant]
     Dosage: 5 MG, QD (QHS)
     Route: 048
  6. RENAGEL                            /01459901/ [Concomitant]
     Dosage: 800 MG, 2 TABLETS, TID WITH MEALS
     Route: 048
  7. RENAGEL                            /01459901/ [Concomitant]
     Dosage: 800 MG, 3 TABLETS, TID WITH MEALS
  8. PROTONIX                           /01263201/ [Concomitant]
     Dosage: 40 MG, QD
     Route: 048
  9. DARVOCET-N 100 [Concomitant]
     Indication: PAIN
     Dosage: 100 UNK, PRN
  10. FOLIC ACID [Concomitant]
     Dosage: 1 MG, QD
     Route: 048
  11. EPOGEN [Concomitant]
     Indication: DIALYSIS
  12. ASPIRIN [Concomitant]
     Dosage: 81 MG, QD
  13. TRACLEER [Concomitant]
     Indication: PULMONARY HYPERTENSION
     Dosage: 62.5 MG, BID
     Route: 048
  14. SORBITOL [Concomitant]
     Dosage: 30 ML, QD
     Route: 048

REACTIONS (6)
  - LUNG INFECTION PSEUDOMONAL [None]
  - MULTI-ORGAN FAILURE [None]
  - NEPHROGENIC SYSTEMIC FIBROSIS [None]
  - OFF LABEL USE [None]
  - RENAL FAILURE CHRONIC [None]
  - RESPIRATORY FAILURE [None]
